FAERS Safety Report 24354823 (Version 1)
Quarter: 2024Q3

REPORT INFORMATION
  Report Type: Spontaneous
  Country: US (occurrence: US)
  Receive Date: 20240923
  Receipt Date: 20240923
  Transmission Date: 20241017
  Serious: No
  Sender: MERCK
  Company Number: US-009507513-2409USA005336

PATIENT
  Age: 45 Year
  Sex: Female

DRUGS (1)
  1. WELIREG [Suspect]
     Active Substance: BELZUTIFAN
     Route: 048
     Dates: start: 202210

REACTIONS (2)
  - Anaemia [Recovered/Resolved]
  - Iron deficiency [Recovered/Resolved]
